FAERS Safety Report 10946287 (Version 1)
Quarter: 2015Q1

REPORT INFORMATION
  Report Type: Spontaneous
  Country: DE (occurrence: DE)
  Receive Date: 20150323
  Receipt Date: 20150323
  Transmission Date: 20150721
  Serious: Yes (Other)
  Sender: FDA-Public Use
  Company Number: DE-WATSON-2015-05271

PATIENT
  Age: 64 Year
  Sex: Female

DRUGS (3)
  1. NORTRIPTYLINE HYDROCHLORIDE (WATSON LABORATORIES) [Suspect]
     Active Substance: NORTRIPTYLINE HYDROCHLORIDE
     Indication: DEPRESSION
     Dosage: 75 MG, DAILY
     Route: 065
  2. LITHIUM CARBONATE. [Concomitant]
     Active Substance: LITHIUM CARBONATE
     Indication: DEPRESSION
     Dosage: 900 MG, DAILY
     Route: 065
  3. MELPERONE [Interacting]
     Active Substance: MELPERONE
     Indication: SLEEP DISORDER
     Dosage: 50 MG, DAILY
     Route: 065

REACTIONS (7)
  - Agitation [Recovered/Resolved]
  - Aptyalism [Unknown]
  - Photodermatosis [Recovered/Resolved with Sequelae]
  - Tremor [Recovered/Resolved]
  - Antidepressant drug level above therapeutic [Recovered/Resolved]
  - Constipation [Unknown]
  - Drug interaction [Unknown]
